FAERS Safety Report 7960526-0 (Version None)
Quarter: 2011Q4

REPORT INFORMATION
  Report Type: 
  Country: None (occurrence: None)
  Receive Date: 20111206
  Receipt Date: 20111130
  Transmission Date: 20120403
  Serious: Yes (Hospitalization, Other)
  Sender: FDA-Public Use
  Company Number: US-PFIZER INC-2011237788

PATIENT
  Sex: Female

DRUGS (4)
  1. ALTACE [Suspect]
     Indication: HYPERTENSION
     Dosage: UNK
     Route: 048
  2. CLONIDINE [Suspect]
  3. LORAZEPAM [Suspect]
     Dosage: UNK
  4. ASPIRIN [Suspect]

REACTIONS (11)
  - ENCEPHALITIS [None]
  - BLOOD PRESSURE INADEQUATELY CONTROLLED [None]
  - VASOSPASM [None]
  - SEDATION [None]
  - ANGIOPATHY [None]
  - RESPIRATORY ARREST [None]
  - CEREBROVASCULAR ACCIDENT [None]
  - STRESS [None]
  - ABASIA [None]
  - LABILE BLOOD PRESSURE [None]
  - LATEX ALLERGY [None]
